FAERS Safety Report 6312619-1 (Version None)
Quarter: 2009Q3

REPORT INFORMATION
  Report Type: 
  Country: None (occurrence: None)
  Receive Date: 20090813
  Receipt Date: 20090803
  Transmission Date: 20100115
  Serious: Yes (Hospitalization)
  Sender: FDA-Public Use
  Company Number: 2008AL009654

PATIENT
  Age: 72 Year
  Sex: Female
  Weight: 53.5244 kg

DRUGS (29)
  1. DIGOXIN [Suspect]
     Dosage: 0.25MG, DAILY, PO
     Dates: end: 20080401
  2. SYNTHROID [Concomitant]
  3. AZOR [Concomitant]
  4. ASPIRIN [Concomitant]
  5. PROTONIX [Concomitant]
  6. PRILOSEC [Concomitant]
  7. IRON [Concomitant]
  8. ADVAIR HFA [Concomitant]
  9. ALBUTEROL [Concomitant]
  10. .. [Concomitant]
  11. REVATIO [Concomitant]
  12. DIOVAN [Concomitant]
  13. HYDROCHLOROTHIAZIDE [Concomitant]
  14. XANAX [Concomitant]
  15. COUMADIN [Concomitant]
  16. LIDOCAINE(3%) [Concomitant]
  17. PREDNISONE TAB [Concomitant]
  18. HYZAAR [Concomitant]
  19. CHANTIX [Concomitant]
  20. AZITHROMYCIN [Concomitant]
  21. SIMUC [Concomitant]
  22. AMOXICILLIN [Concomitant]
  23. AMIODARONE [Concomitant]
  24. ZYRTEC [Concomitant]
  25. FLOVENT [Concomitant]
  26. CARDIZEM [Concomitant]
  27. VIAGRA [Concomitant]
  28. LASIX [Concomitant]
  29. SPIRIVA [Concomitant]

REACTIONS (21)
  - ANHEDONIA [None]
  - ANXIETY [None]
  - ARRHYTHMIA SUPRAVENTRICULAR [None]
  - ASTHENIA [None]
  - ATRIAL FIBRILLATION [None]
  - ATRIAL FLUTTER [None]
  - COUGH [None]
  - DECREASED APPETITE [None]
  - DIZZINESS [None]
  - DYSPNOEA [None]
  - EMOTIONAL DISTRESS [None]
  - FATIGUE [None]
  - FEAR [None]
  - HEART RATE INCREASED [None]
  - HYPOXIA [None]
  - INJURY [None]
  - MALAISE [None]
  - OEDEMA PERIPHERAL [None]
  - PAIN [None]
  - PALPITATIONS [None]
  - TREMOR [None]
